FAERS Safety Report 25611991 (Version 1)
Quarter: 2025Q3

REPORT INFORMATION
  Report Type: Spontaneous
  Country: US (occurrence: US)
  Receive Date: 20250728
  Receipt Date: 20250728
  Transmission Date: 20251020
  Serious: Yes (Other)
  Sender: RECORDATI
  Company Number: US-RECORDATI RARE DISEASE INC.-2024006419

PATIENT

DRUGS (2)
  1. PANHEMATIN [Suspect]
     Active Substance: HEMIN
     Indication: Porphyria acute
     Route: 065
     Dates: start: 2022
  2. PANHEMATIN [Suspect]
     Active Substance: HEMIN
     Route: 065

REACTIONS (5)
  - Phlebitis [Unknown]
  - Device issue [Unknown]
  - Swelling [Unknown]
  - Contusion [Unknown]
  - Erythema [Unknown]
